FAERS Safety Report 9897703 (Version 1)
Quarter: 2014Q1

REPORT INFORMATION
  Report Type: Spontaneous
  Country: DE (occurrence: DE)
  Receive Date: 20140214
  Receipt Date: 20140214
  Transmission Date: 20141002
  Serious: Yes (Life-Threatening)
  Sender: FDA-Public Use
  Company Number: DE-B.I. PHARMACEUTICALS,INC./RIDGEFIELD-2014-BI-06091DE

PATIENT
  Age: 86 Year
  Sex: Female
  Weight: 50 kg

DRUGS (12)
  1. PRADAXA [Suspect]
     Indication: ATRIAL FIBRILLATION
  2. METOPROLOL [Concomitant]
     Indication: HYPERTENSION
     Dosage: 190 MG
     Route: 048
  3. VALSARTAN [Concomitant]
     Indication: HYPERTENSION
     Dosage: 160 MG
     Route: 048
  4. SIMVASTATIN [Concomitant]
     Indication: HYPERLIPIDAEMIA
     Dosage: 20 MG
     Route: 048
  5. TORASEMID [Concomitant]
     Indication: CARDIAC FAILURE
     Dosage: 5 MG
     Route: 048
  6. TAVOR [Concomitant]
     Dosage: 2 MG
  7. OXYCODONE [Concomitant]
     Dosage: 40 MG
  8. METAMIZOL 500 [Concomitant]
     Dosage: 6 ANZ
  9. DEKRISTOL [Concomitant]
     Dosage: DOSAGE OF DEKRISTOL: 20000 IU ALL 14 DAYS
  10. MACROGOL [Concomitant]
     Dosage: 25 ML
  11. AMLODIPINE [Concomitant]
     Dosage: 10 MG
  12. SPIRONOLACTONE [Concomitant]
     Dosage: 25 MG

REACTIONS (2)
  - Brain stem stroke [Recovered/Resolved]
  - Delirium [Recovered/Resolved]
